FAERS Safety Report 17908794 (Version 2)
Quarter: 2020Q2

REPORT INFORMATION
  Report Type: Report from Study
  Country: GB (occurrence: GB)
  Receive Date: 20200617
  Receipt Date: 20200624
  Transmission Date: 20200714
  Serious: Yes (Hospitalization)
  Sender: FDA-Public Use
  Company Number: GB-JNJFOC-20200610310

PATIENT
  Sex: Female

DRUGS (5)
  1. FENTANYL. [Concomitant]
     Active Substance: FENTANYL
     Route: 065
  2. ORAMORPH [Concomitant]
     Active Substance: MORPHINE SULFATE
  3. STELARA [Suspect]
     Active Substance: USTEKINUMAB
     Indication: PSORIASIS
     Route: 058
     Dates: start: 20150905
  4. GABAPENTIN. [Concomitant]
     Active Substance: GABAPENTIN
  5. STELARA [Suspect]
     Active Substance: USTEKINUMAB

REACTIONS (3)
  - Chronic obstructive pulmonary disease [Not Recovered/Not Resolved]
  - Psoriasis [Unknown]
  - Lower respiratory tract infection [Not Recovered/Not Resolved]
